FAERS Safety Report 8953632 (Version 1)
Quarter: 2012Q4

REPORT INFORMATION
  Report Type: 
  Country: CN (occurrence: CN)
  Receive Date: 20121206
  Receipt Date: 20121206
  Transmission Date: 20130627
  Serious: Yes (Death, Hospitalization)
  Sender: FDA-Public Use
  Company Number: CN-BAYER-2012-127445

PATIENT
  Age: 90 Year
  Sex: Female
  Weight: 50 kg

DRUGS (1)
  1. BAYASPIRIN [Suspect]
     Indication: ANTICOAGULANT THERAPY
     Dosage: 100 mg, QD
     Route: 048
     Dates: start: 20051001, end: 20101026

REACTIONS (1)
  - Gastric ulcer haemorrhage [Fatal]
